FAERS Safety Report 4845839-3 (Version None)
Quarter: 2005Q4

REPORT INFORMATION
  Report Type: 
  Country: None (occurrence: None)
  Receive Date: 20051206
  Receipt Date: 20051130
  Transmission Date: 20060501
  Serious: Yes (Other)
  Sender: FDA-Public Use
  Company Number: US-GLAXOSMITHKLINE-A0584717A

PATIENT
  Age: 35 Year
  Sex: Female

DRUGS (2)
  1. BUPROPION HCL [Suspect]
     Indication: MAJOR DEPRESSION
     Route: 048
     Dates: start: 20040507, end: 20050101
  2. SSRI [Concomitant]
     Route: 048

REACTIONS (2)
  - ABORTION SPONTANEOUS [None]
  - DRUG EXPOSURE DURING PREGNANCY [None]
